FAERS Safety Report 18096110 (Version 1)
Quarter: 2020Q3

REPORT INFORMATION
  Report Type: Spontaneous
  Country: US (occurrence: US)
  Receive Date: 20200731
  Receipt Date: 20200731
  Transmission Date: 20201103
  Serious: No
  Sender: FDA-Public Use
  Company Number: US-DRREDDYS-USA/USA/20/0125333

PATIENT

DRUGS (1)
  1. NICOTINE. [Suspect]
     Active Substance: NICOTINE
     Indication: NICOTINE DEPENDENCE
     Route: 062

REACTIONS (5)
  - Chills [Unknown]
  - Pruritus [Unknown]
  - Feeling hot [Unknown]
  - Hyperhidrosis [Unknown]
  - Application site vesicles [Unknown]
